FAERS Safety Report 10744880 (Version 1)
Quarter: 2015Q1

REPORT INFORMATION
  Report Type: Spontaneous
  Country: US (occurrence: None)
  Receive Date: 20150126
  Receipt Date: 20150126
  Transmission Date: 20150721
  Serious: Yes (Life-Threatening, Hospitalization, Disabling, Other)
  Sender: FDA-Public Use
  Company Number: None

PATIENT
  Age: 59 Year
  Sex: Male
  Weight: 81.65 kg

DRUGS (1)
  1. LISINOPRIL. [Suspect]
     Active Substance: LISINOPRIL
     Indication: HYPERTENSION
     Route: 048

REACTIONS (9)
  - Renal failure [None]
  - Weight increased [None]
  - Activities of daily living impaired [None]
  - Malaise [None]
  - Fluid retention [None]
  - Shock [None]
  - Overdose [None]
  - Apparent death [None]
  - Dialysis [None]

NARRATIVE: CASE EVENT DATE: 20150111
